FAERS Safety Report 16820593 (Version 2)
Quarter: 2019Q4

REPORT INFORMATION
  Report Type: Report from Study
  Country: None (occurrence: US)
  Receive Date: 20190918
  Receipt Date: 20191003
  Transmission Date: 20200122
  Serious: No
  Sender: FDA-Public Use
  Company Number: US-ABBVIE-19K-163-2926293-00

PATIENT
  Sex: Female
  Weight: 63.56 kg

DRUGS (2)
  1. SYNTHROID [Suspect]
     Active Substance: LEVOTHYROXINE SODIUM
     Indication: HYPOTHYROIDISM
     Route: 048
     Dates: start: 2007
  2. SYNTHROID [Suspect]
     Active Substance: LEVOTHYROXINE SODIUM
     Route: 048

REACTIONS (6)
  - Depressed mood [Recovered/Resolved]
  - Energy increased [Unknown]
  - Weight increased [Not Recovered/Not Resolved]
  - Alopecia [Recovered/Resolved]
  - Exposure during pregnancy [Unknown]
  - Blood thyroid stimulating hormone abnormal [Recovered/Resolved]

NARRATIVE: CASE EVENT DATE: 2007
